FAERS Safety Report 10362172 (Version 2)
Quarter: 2014Q3

REPORT INFORMATION
  Report Type: Spontaneous
  Country: US (occurrence: US)
  Receive Date: 20140805
  Receipt Date: 20140805
  Transmission Date: 20150326
  Serious: No
  Sender: FDA-Public Use
  Company Number: US-THROMBOGENICS INC-JET-2014-326

PATIENT

DRUGS (1)
  1. JETREA [Suspect]
     Active Substance: OCRIPLASMIN
     Indication: VITREOUS ADHESIONS
     Dosage: 0.125 MG, ONE TIME DOSE
     Route: 031

REACTIONS (4)
  - Metamorphopsia [Unknown]
  - Chromatopsia [Unknown]
  - Photopsia [Unknown]
  - Retinogram abnormal [Unknown]
